FAERS Safety Report 16067141 (Version 1)
Quarter: 2019Q1

REPORT INFORMATION
  Report Type: Report from Study
  Country: US (occurrence: US)
  Receive Date: 20190313
  Receipt Date: 20190313
  Transmission Date: 20190418
  Serious: Yes (Other)
  Sender: FDA-Public Use
  Company Number: US-JNJFOC-20190108292

PATIENT
  Sex: Female

DRUGS (13)
  1. IMBRUVICA [Suspect]
     Active Substance: IBRUTINIB
     Indication: CHRONIC LYMPHOCYTIC LEUKAEMIA
     Route: 048
     Dates: start: 20180411
  2. ASCORBIC ACID. [Concomitant]
     Active Substance: ASCORBIC ACID
  3. CENTRUM SILVER [Concomitant]
     Active Substance: MINERALS\VITAMINS
  4. VITAMIN D3 [Concomitant]
     Active Substance: CHOLECALCIFEROL
  5. SYMBICORT [Concomitant]
     Active Substance: BUDESONIDE\FORMOTEROL FUMARATE DIHYDRATE
  6. KLOR-CON [Concomitant]
     Active Substance: POTASSIUM CHLORIDE
  7. IPRATROPIUM BROMIDE. [Concomitant]
     Active Substance: IPRATROPIUM BROMIDE
  8. LEVAQUIN [Concomitant]
     Active Substance: LEVOFLOXACIN
  9. VITAMIN D [Concomitant]
     Active Substance: CHOLECALCIFEROL
  10. IMBRUVICA [Suspect]
     Active Substance: IBRUTINIB
     Indication: LYMPHOCYTIC LEUKAEMIA
     Route: 048
     Dates: start: 20180411
  11. BREO ELLIPTA [Concomitant]
     Active Substance: FLUTICASONE FUROATE\VILANTEROL TRIFENATATE
  12. TORSEMIDE. [Concomitant]
     Active Substance: TORSEMIDE
  13. METOPROLOL SUCCINATE. [Concomitant]
     Active Substance: METOPROLOL SUCCINATE

REACTIONS (8)
  - Nausea [Unknown]
  - Pleural effusion [Unknown]
  - Thrombocytopenia [Unknown]
  - Lymphocyte count increased [Unknown]
  - Cough [Unknown]
  - Fatigue [Unknown]
  - Surgery [Unknown]
  - Impaired healing [Unknown]
